FAERS Safety Report 16449501 (Version 1)
Quarter: 2019Q2

REPORT INFORMATION
  Report Type: Spontaneous
  Country: US (occurrence: US)
  Receive Date: 20190508
  Receipt Date: 20190508
  Transmission Date: 20190711
  Serious: No
  Sender: FDA-Public Use
  Company Number: None

PATIENT
  Age: 65 Year
  Sex: Female
  Weight: 76.66 kg

DRUGS (1)
  1. BENLYSTA [Suspect]
     Active Substance: BELIMUMAB
     Indication: SYSTEMIC LUPUS ERYTHEMATOSUS
     Dates: start: 2015, end: 201902

REACTIONS (4)
  - Oral discomfort [None]
  - Inflammation [None]
  - Nail avulsion [None]
  - Gingival swelling [None]

NARRATIVE: CASE EVENT DATE: 201812
